FAERS Safety Report 7819262-3 (Version None)
Quarter: 2011Q4

REPORT INFORMATION
  Report Type: 
  Country: None (occurrence: None)
  Receive Date: 20111018
  Receipt Date: 20100916
  Transmission Date: 20120403
  Serious: No
  Sender: FDA-Public Use
  Company Number: US-ASTRAZENECA-2010SE43708

PATIENT
  Age: 38 Year
  Sex: Male
  Weight: 72.6 kg

DRUGS (2)
  1. SYMBICORT [Suspect]
     Dosage: 160 MCG TWICE DAILY
     Route: 055
     Dates: start: 20100902
  2. SYMBICORT [Suspect]
     Indication: BRONCHITIS
     Dosage: 160 MCG TWICE DAILY
     Route: 055
     Dates: start: 20100818, end: 20100825

REACTIONS (6)
  - BRONCHITIS [None]
  - CHEST DISCOMFORT [None]
  - NASOPHARYNGITIS [None]
  - DYSPEPSIA [None]
  - DYSPHONIA [None]
  - OROPHARYNGEAL PAIN [None]
